FAERS Safety Report 8303337 (Version 4)
Quarter: 2013Q2

REPORT INFORMATION
  Report Type: Spontaneous
  Country: US (occurrence: None)
  Receive Date: 20111122
  Receipt Date: 20121031
  Transmission Date: 20140414
  Serious: No
  Sender: FDA-Public Use
  Company Number: PHHY2011US52551

PATIENT
  Sex: Female

DRUGS (8)
  1. GILENYA [Suspect]
     Indication: MULTIPLE SCLEROSIS
     Dosage: 0.5 MG, QD, ORAL
     Route: 048
  2. LEXAPRO (SCITALOPRAM OXALATE) [Concomitant]
  3. AMANTADINE (AMANTIDINE) [Concomitant]
  4. ROBAXIN (METHOCARBAMOL) [Concomitant]
  5. CALCIUM (CALCIUM) [Concomitant]
  6. VITAMIN D (ERGOCALCIFEROL) [Concomitant]
  7. FAMPRIDINE (FAMPRIDINE) [Concomitant]
  8. ZANAFLEX (TIZANIDINE HYDROCHLORIDE) [Concomitant]

REACTIONS (8)
  - TONGUE DISORDER [None]
  - Pain in extremity [None]
  - Neck pain [None]
  - Balance disorder [None]
  - Bladder discomfort [None]
  - Lhermitte^s sign [None]
  - Back pain [None]
  - Urinary incontinence [None]
